FAERS Safety Report 14689000 (Version 1)
Quarter: 2018Q1

REPORT INFORMATION
  Report Type: Spontaneous
  Country: US (occurrence: US)
  Receive Date: 20180327
  Receipt Date: 20180327
  Transmission Date: 20180509
  Serious: Yes (Life-Threatening, Hospitalization, Disabling, Other)
  Sender: FDA-Public Use
  Company Number: None

PATIENT
  Age: 63 Year
  Sex: Male
  Weight: 105.75 kg

DRUGS (9)
  1. HYDRALAZINE [Concomitant]
     Active Substance: HYDRALAZINE HYDROCHLORIDE
  2. SPIRONOLACTONE. [Concomitant]
     Active Substance: SPIRONOLACTONE
  3. XIFAXAN [Concomitant]
     Active Substance: RIFAXIMIN
  4. ALBUTEROL. [Concomitant]
     Active Substance: ALBUTEROL
  5. FERROUS SULFATE. [Concomitant]
     Active Substance: FERROUS SULFATE
  6. AMLODIPINE [Concomitant]
     Active Substance: AMLODIPINE BESYLATE
  7. LACTULOSE. [Concomitant]
     Active Substance: LACTULOSE
  8. TAMSULOSIN [Concomitant]
     Active Substance: TAMSULOSIN
  9. BUMETANIDE. [Suspect]
     Active Substance: BUMETANIDE
     Indication: OEDEMA
     Dosage: ?          QUANTITY:1 TABLET(S);?
     Route: 048
     Dates: start: 20180306, end: 20180319

REACTIONS (5)
  - Oral mucosal blistering [None]
  - Oedema [None]
  - Oropharyngeal blistering [None]
  - Dialysis [None]
  - Acute kidney injury [None]

NARRATIVE: CASE EVENT DATE: 20180320
